FAERS Safety Report 10910385 (Version 1)
Quarter: 2015Q1

REPORT INFORMATION
  Report Type: Spontaneous
  Country: US (occurrence: US)
  Receive Date: 20150312
  Receipt Date: 20150312
  Transmission Date: 20150721
  Serious: No
  Sender: FDA-Public Use
  Company Number: US-SA-2014SA162027

PATIENT
  Age: 54 Year
  Sex: Female

DRUGS (2)
  1. NASACORT ALLERGY 24HR [Suspect]
     Active Substance: TRIAMCINOLONE ACETONIDE
     Dosage: PRODUCT USING FOR 1 MONTH. DOSE: 2 SPRAYS IN EACH NOSTRIL.
     Route: 045
     Dates: start: 201410
  2. NASACORT ALLERGY 24HR [Suspect]
     Active Substance: TRIAMCINOLONE ACETONIDE
     Dosage: DOSE: 1 SPRAY IN EACH NOSTRIL
     Route: 045

REACTIONS (2)
  - Oropharyngeal pain [Unknown]
  - Epistaxis [Recovered/Resolved]

NARRATIVE: CASE EVENT DATE: 20141118
